FAERS Safety Report 8380850-X (Version None)
Quarter: 2012Q2

REPORT INFORMATION
  Report Type: 
  Country: None (occurrence: None)
  Receive Date: 20120523
  Receipt Date: 20120521
  Transmission Date: 20120825
  Serious: Yes (Death, Other)
  Sender: FDA-Public Use
  Company Number: US-PFIZER INC-2012056494

PATIENT
  Sex: Male

DRUGS (2)
  1. SPRYCEL [Suspect]
     Indication: ACUTE LYMPHOCYTIC LEUKAEMIA
     Dosage: 140 MG, 1 DAY
     Route: 048
     Dates: start: 20111201
  2. VFEND [Suspect]
     Indication: LEUKAEMIA
     Dosage: 150 MG, 2X/DAY
     Dates: start: 20110929

REACTIONS (4)
  - LEUKAEMIA [None]
  - DISEASE PROGRESSION [None]
  - PNEUMONIA [None]
  - DISEASE RECURRENCE [None]
